FAERS Safety Report 7807144-2 (Version None)
Quarter: 2011Q4

REPORT INFORMATION
  Report Type: 
  Country: None (occurrence: None)
  Receive Date: 20111011
  Receipt Date: 20111003
  Transmission Date: 20120403
  Serious: Yes (Hospitalization)
  Sender: FDA-Public Use
  Company Number: PHHY2011ES87094

PATIENT
  Age: 47 Year
  Sex: Male

DRUGS (7)
  1. LORMETAZEPAM [Concomitant]
  2. RISPERIDONE [Concomitant]
  3. ACETAMINOPHEN [Concomitant]
  4. CLOZAPINE [Suspect]
     Indication: SCHIZOPHRENIA, PARANOID TYPE
     Dosage: 600 MG, DAILY
     Route: 048
     Dates: start: 20050105
  5. OLANZAPINE [Concomitant]
  6. LORAZEPAM [Concomitant]
  7. BIPERIDEN [Concomitant]

REACTIONS (4)
  - RECTAL HAEMORRHAGE [None]
  - SIGMOIDITIS [None]
  - PYREXIA [None]
  - COLITIS ISCHAEMIC [None]
